FAERS Safety Report 12784326 (Version 1)
Quarter: 2016Q3

REPORT INFORMATION
  Report Type: Spontaneous
  Country: GB (occurrence: GB)
  Receive Date: 20160927
  Receipt Date: 20160927
  Transmission Date: 20161109
  Serious: Yes (Disabling, Other)
  Sender: FDA-Public Use
  Company Number: GB-BEH-200712168

PATIENT
  Age: 38 Year
  Weight: 75 kg

DRUGS (16)
  1. HELIXATE NEXGEN [Suspect]
     Active Substance: ANTIHEMOPHILIC FACTOR, HUMAN RECOMBINANT
     Dosage: DAILY DOSE QUANTITY: 42000, DAILY DOSE UNIT: IU
     Route: 042
     Dates: start: 20040721, end: 20040721
  2. HELIXATE NEXGEN [Suspect]
     Active Substance: ANTIHEMOPHILIC FACTOR, HUMAN RECOMBINANT
     Dosage: DAILY DOSE QUANTITY: 3000, DAILY DOSE UNIT: IU
     Route: 042
     Dates: start: 20050615, end: 20050615
  3. HELIXATE NEXGEN [Suspect]
     Active Substance: ANTIHEMOPHILIC FACTOR, HUMAN RECOMBINANT
     Dosage: DAILY DOSE QUANTITY: 42000, DAILY DOSE UNIT: IU
     Route: 042
     Dates: start: 20041112, end: 20041112
  4. HELIXATE NEXGEN [Suspect]
     Active Substance: ANTIHEMOPHILIC FACTOR, HUMAN RECOMBINANT
     Dosage: DAILY DOSE QUANTITY: 42000, DAILY DOSE UNIT: IU
     Route: 042
     Dates: start: 20041216, end: 20041216
  5. HELIXATE NEXGEN [Suspect]
     Active Substance: ANTIHEMOPHILIC FACTOR, HUMAN RECOMBINANT
     Dosage: DAILY DOSE QUANTITY: 42000, DAILY DOSE UNIT: IU
     Route: 042
     Dates: start: 20050210, end: 20050210
  6. HELIXATE NEXGEN [Suspect]
     Active Substance: ANTIHEMOPHILIC FACTOR, HUMAN RECOMBINANT
     Dosage: DAILY DOSE QUANTITY: 50000, DAILY DOSE UNIT: IU
     Route: 042
     Dates: start: 20040827, end: 20040827
  7. HELIXATE NEXGEN [Suspect]
     Active Substance: ANTIHEMOPHILIC FACTOR, HUMAN RECOMBINANT
     Dosage: DAILY DOSE QUANTITY: 42000, DAILY DOSE UNIT: IU
     Route: 042
     Dates: start: 20050323, end: 20050323
  8. HELIXATE NEXGEN [Suspect]
     Active Substance: ANTIHEMOPHILIC FACTOR, HUMAN RECOMBINANT
     Dosage: DAILY DOSE QUANTITY: 14000, DAILY DOSE UNIT: IU
     Route: 042
     Dates: start: 20050404, end: 20050404
  9. HELIXATE NEXGEN [Suspect]
     Active Substance: ANTIHEMOPHILIC FACTOR, HUMAN RECOMBINANT
     Dosage: DAILY DOSE QUANTITY: 1122, DAILY DOSE UNIT: IU
     Route: 042
     Dates: start: 20060220, end: 20060220
  10. HELIXATE NEXGEN [Suspect]
     Active Substance: ANTIHEMOPHILIC FACTOR, HUMAN RECOMBINANT
     Indication: FACTOR VIII DEFICIENCY
     Dosage: DAILY DOSE QUANTITY: 4248, DAILY DOSE UNIT: IU
     Route: 042
     Dates: start: 20040420, end: 20040420
  11. HELIXATE NEXGEN [Suspect]
     Active Substance: ANTIHEMOPHILIC FACTOR, HUMAN RECOMBINANT
     Dosage: DAILY DOSE QUANTITY: 40000, DAILY DOSE UNIT: IU
     Route: 042
     Dates: start: 20040420, end: 20040420
  12. HELIXATE NEXGEN [Suspect]
     Active Substance: ANTIHEMOPHILIC FACTOR, HUMAN RECOMBINANT
     Dosage: DAILY DOSE QUANTITY: 42000, DAILY DOSE UNIT: IU
     Route: 042
     Dates: start: 20040528, end: 20040528
  13. HELIXATE NEXGEN [Suspect]
     Active Substance: ANTIHEMOPHILIC FACTOR, HUMAN RECOMBINANT
     Dosage: DAILY DOSE QUANTITY: 42000, DAILY DOSE UNIT: IU
     Route: 042
     Dates: start: 20040623, end: 20040623
  14. HELIXATE NEXGEN [Suspect]
     Active Substance: ANTIHEMOPHILIC FACTOR, HUMAN RECOMBINANT
     Dosage: DAILY DOSE QUANTITY: 34000, DAILY DOSE UNIT: IU
     Route: 042
     Dates: start: 20041020, end: 20041020
  15. HELIXATE NEXGEN [Suspect]
     Active Substance: ANTIHEMOPHILIC FACTOR, HUMAN RECOMBINANT
     Dosage: DAILY DOSE QUANTITY: 42000, DAILY DOSE UNIT: IU
     Route: 042
     Dates: start: 20050121, end: 20050121
  16. HELIXATE NEXGEN [Suspect]
     Active Substance: ANTIHEMOPHILIC FACTOR, HUMAN RECOMBINANT
     Dosage: DAILY DOSE QUANTITY: 67000, DAILY DOSE UNIT: IU
     Route: 042
     Dates: start: 20050421, end: 20050421

REACTIONS (6)
  - Haemarthrosis [Recovered/Resolved]
  - Haemarthrosis [Recovered/Resolved]
  - Haemarthrosis [Recovered/Resolved]
  - Haemarthrosis [Recovered/Resolved]
  - Factor VIII inhibition [Recovering/Resolving]
  - Haemarthrosis [Recovered/Resolved]

NARRATIVE: CASE EVENT DATE: 20051005
